FAERS Safety Report 25537219 (Version 1)
Quarter: 2025Q3

REPORT INFORMATION
  Report Type: Spontaneous
  Country: CN (occurrence: CN)
  Receive Date: 20250710
  Receipt Date: 20250710
  Transmission Date: 20251021
  Serious: Yes (Hospitalization, Other)
  Sender: HISUN PHARMACEUTICALS USA INC
  Company Number: CN-Hisun Pharmaceuticals USA Inc.-000492

PATIENT
  Age: 13 Year
  Sex: Female
  Weight: 35 kg

DRUGS (9)
  1. DACTINOMYCIN [Suspect]
     Active Substance: DACTINOMYCIN
     Indication: Neoplasm malignant
     Route: 042
     Dates: start: 20250315, end: 20250315
  2. IFOSFAMIDE [Suspect]
     Active Substance: IFOSFAMIDE
     Indication: Neoplasm malignant
     Dosage: 3450 MG
     Route: 042
     Dates: start: 20250315, end: 20250317
  3. VINCRISTINE [Suspect]
     Active Substance: VINCRISTINE
     Indication: Neoplasm malignant
     Route: 042
     Dates: start: 20250315, end: 20250315
  4. SODIUM CHLORIDE [Concomitant]
     Active Substance: SODIUM CHLORIDE
     Indication: Vehicle solution use
     Route: 042
     Dates: start: 20250315, end: 20250315
  5. DEXTROSE [Concomitant]
     Active Substance: DEXTROSE MONOHYDRATE
     Indication: Vehicle solution use
     Dosage: 500 ML
     Route: 042
     Dates: start: 20250315, end: 20250317
  6. WATER [Concomitant]
     Active Substance: WATER
     Indication: Vehicle solution use
     Dosage: 20 ML
     Route: 042
     Dates: start: 20250315, end: 20250317
  7. MESNA [Concomitant]
     Active Substance: MESNA
     Indication: Prophylaxis
     Dosage: 0.69 G
     Route: 042
     Dates: start: 20250315, end: 20250317
  8. SODIUM CHLORIDE [Concomitant]
     Active Substance: SODIUM CHLORIDE
     Indication: Vehicle solution use
     Dosage: 50 ML
     Route: 042
     Dates: start: 20250315, end: 20250315
  9. SODIUM CHLORIDE [Concomitant]
     Active Substance: SODIUM CHLORIDE
     Indication: Vehicle solution use
     Dosage: 50 ML
     Route: 042
     Dates: start: 20250315, end: 20250317

REACTIONS (3)
  - Myocardial injury [Recovering/Resolving]
  - Cystitis [Recovering/Resolving]
  - Myelosuppression [Recovering/Resolving]

NARRATIVE: CASE EVENT DATE: 20250316
